FAERS Safety Report 11909047 (Version 1)
Quarter: 2016Q1

REPORT INFORMATION
  Report Type: Spontaneous
  Country: US (occurrence: US)
  Receive Date: 20160111
  Receipt Date: 20160111
  Transmission Date: 20160526
  Serious: Yes (Death, Hospitalization)
  Sender: FDA-Public Use
  Company Number: US-JNJFOC-20160100254

PATIENT
  Age: 29 Year
  Sex: Male
  Weight: 113.4 kg

DRUGS (2)
  1. BENADRYL [Suspect]
     Active Substance: DIPHENHYDRAMINE HYDROCHLORIDE
     Indication: NASOPHARYNGITIS
     Dosage: FOR 5-7 DAYS
     Route: 048
  2. TYLENOL COLD UNSPECIFIED (ACETAMINOPHEN\DEXTROMETHORPHAN HYDROBROMIDE\GUAIFENESIN\PHENYLEPHRINE HYDROCHLORIDE) [Suspect]
     Active Substance: ACETAMINOPHEN\DEXTROMETHORPHAN HYDROBROMIDE\GUAIFENESIN\PHENYLEPHRINE HYDROCHLORIDE
     Indication: NASOPHARYNGITIS
     Dosage: FOR 5-7 DAYS
     Route: 048
     Dates: start: 20151221

REACTIONS (2)
  - Drug ineffective [Unknown]
  - Pancreatitis [Fatal]

NARRATIVE: CASE EVENT DATE: 201512
